FAERS Safety Report 18935297 (Version 8)
Quarter: 2025Q2

REPORT INFORMATION
  Report Type: Report from Study
  Country: US (occurrence: US)
  Receive Date: 20210224
  Receipt Date: 20250605
  Transmission Date: 20250716
  Serious: Yes (Other)
  Sender: ESTEVE
  Company Number: US-HRARD-202000846

PATIENT
  Age: 32 Year
  Sex: Female

DRUGS (8)
  1. LYSODREN [Suspect]
     Active Substance: MITOTANE
     Indication: Adrenal gland cancer
     Dates: start: 20201007
  2. PRILOSEC OTC TAB 20MG [Concomitant]
  3. INFED [Concomitant]
     Active Substance: IRON DEXTRAN
  4. IRON TAB 45MG [Concomitant]
  5. ATORVASTATIN [Concomitant]
     Active Substance: ATORVASTATIN
  6. KEYTRUDA INJ 100MG/4M [Concomitant]
  7. PREDNISONE [Concomitant]
     Active Substance: PREDNISONE
  8. CBD KINGS DIS W/LIDO [Concomitant]

REACTIONS (12)
  - Hypothyroidism [Not Recovered/Not Resolved]
  - Product dose omission in error [Unknown]
  - Drug ineffective [Not Recovered/Not Resolved]
  - Headache [Not Recovered/Not Resolved]
  - Dizziness [Not Recovered/Not Resolved]
  - Fatigue [Not Recovered/Not Resolved]
  - Asthenia [Not Recovered/Not Resolved]
  - Diarrhoea [Unknown]
  - Vomiting [Not Recovered/Not Resolved]
  - Nausea [Not Recovered/Not Resolved]
  - Amnesia [Not Recovered/Not Resolved]
  - Oropharyngeal pain [Not Recovered/Not Resolved]

NARRATIVE: CASE EVENT DATE: 20201007
